FAERS Safety Report 4620047-X (Version None)
Quarter: 2005Q1

REPORT INFORMATION
  Report Type: 
  Country: None (occurrence: None)
  Receive Date: 20050322
  Receipt Date: 20050322
  Transmission Date: 20050727
  Serious: Yes (Other)
  Sender: FDA-Public Use
  Company Number: None

PATIENT
  Sex: Female
  Weight: 45.3597 kg

DRUGS (1)
  1. OXYTROL [Suspect]
     Indication: BLADDER SPASM
     Dosage: 1 PATCH   TWICE A WEEK   TRANSDERMAL
     Route: 062
     Dates: start: 20030713, end: 20050321

REACTIONS (2)
  - DRUG INEFFECTIVE [None]
  - PHARMACEUTICAL PRODUCT COMPLAINT [None]
